FAERS Safety Report 10596877 (Version 5)
Quarter: 2014Q4

REPORT INFORMATION
  Report Type: Spontaneous
  Country: US (occurrence: US)
  Receive Date: 20141120
  Receipt Date: 20141226
  Transmission Date: 20150529
  Serious: Yes (Death, Hospitalization, Other)
  Sender: FDA-Public Use
  Company Number: US-ACTELION-A-NJ2014-107710

PATIENT
  Age: 53 Year
  Sex: Male

DRUGS (36)
  1. POTASSIUM CHLORIDE. [Concomitant]
     Active Substance: POTASSIUM CHLORIDE
     Dosage: 20 MEQ, BID
  2. LANTUS [Concomitant]
     Active Substance: INSULIN GLARGINE
     Dosage: 100 U/ML, UNK
  3. XIFAXAN [Concomitant]
     Active Substance: RIFAXIMIN
     Dosage: 550 MG, BID
  4. DOMPERIDONE [Concomitant]
     Active Substance: DOMPERIDONE
     Dosage: 1 UNK, UNK
  5. VENTAVIS [Suspect]
     Active Substance: ILOPROST
     Dosage: 2.5 MCG, 6X/DAY
     Route: 055
     Dates: start: 20141028
  6. GABAPENTIN. [Concomitant]
     Active Substance: GABAPENTIN
     Dosage: 800 -1200 MG, BID
  7. PROAIR HFA [Concomitant]
     Active Substance: ALBUTEROL SULFATE
     Dosage: UNK, PRN
  8. FUROSEMIDE. [Concomitant]
     Active Substance: FUROSEMIDE
     Dosage: 80 MG, TID
  9. REVATIO [Concomitant]
     Active Substance: SILDENAFIL CITRATE
     Dosage: 40 MG, TID
  10. NADOLOL. [Concomitant]
     Active Substance: NADOLOL
     Dosage: 20 MG, QD
  11. LASIX [Concomitant]
     Active Substance: FUROSEMIDE
     Dosage: 80 MG, TID
  12. ALDACTONE [Concomitant]
     Active Substance: SPIRONOLACTONE
     Dosage: 50 MG, BID
  13. HUMALOG [Concomitant]
     Active Substance: INSULIN LISPRO
  14. BACLOFEN. [Concomitant]
     Active Substance: BACLOFEN
     Dosage: 10 MG, TID
  15. ADVAIR HFA [Concomitant]
     Active Substance: FLUTICASONE PROPIONATE\SALMETEROL XINAFOATE
     Dosage: UNK, BID
  16. AMBIEN [Concomitant]
     Active Substance: ZOLPIDEM TARTRATE
     Dosage: 5 MG, UNK
  17. VENTAVIS [Suspect]
     Active Substance: ILOPROST
     Indication: PULMONARY ARTERIAL HYPERTENSION
     Dosage: 5 MCG, 6 TO 9 X/DAY
     Route: 055
     Dates: start: 20141028, end: 20141122
  18. METFORMIN [Concomitant]
     Active Substance: METFORMIN HYDROCHLORIDE
     Dosage: 1000 MG, BID
  19. ZOLPIDEM [Concomitant]
     Active Substance: ZOLPIDEM\ZOLPIDEM TARTRATE
     Dosage: 10 MG, QD
  20. ZOLPIDEM [Concomitant]
     Active Substance: ZOLPIDEM\ZOLPIDEM TARTRATE
     Dosage: 10 MG, QD
  21. FERROUS SULFATE [Concomitant]
     Active Substance: FERROUS SULFATE\FERROUS SULFATE, DRIED
     Dosage: 325 MG, BID
     Route: 048
  22. OXYGEN. [Concomitant]
     Active Substance: OXYGEN
     Dosage: 2 L/MIN, UNK
  23. SPIRIVA [Concomitant]
     Active Substance: TIOTROPIUM BROMIDE MONOHYDRATE
     Dosage: 18 MCG, QD
  24. LETAIRIS [Suspect]
     Active Substance: AMBRISENTAN
     Indication: PULMONARY ARTERIAL HYPERTENSION
     Dosage: 5 MG, QD
     Route: 065
     Dates: start: 20141023
  25. REVATIO [Concomitant]
     Active Substance: SILDENAFIL CITRATE
     Dosage: 20 MG, TID
  26. JANUVIA [Concomitant]
     Active Substance: SITAGLIPTIN PHOSPHATE
     Dosage: 100 MG, QD
  27. LEVOTHYROXINE [Concomitant]
     Active Substance: LEVOTHYROXINE
     Dosage: 50 MCG, UNK
  28. LACTULOSE. [Concomitant]
     Active Substance: LACTULOSE
     Dosage: UNK, PRN
  29. DOCUSATE [Concomitant]
     Active Substance: DOCUSATE
     Dosage: 100 MG, QD
     Route: 048
  30. SPIRONOLACTONE. [Concomitant]
     Active Substance: SPIRONOLACTONE
     Dosage: 100 MG, QD
  31. OMEPRAZOLE. [Concomitant]
     Active Substance: OMEPRAZOLE
     Dosage: 20 MG, QD
  32. LEVOTHYROXINE [Concomitant]
     Active Substance: LEVOTHYROXINE
     Dosage: 125 MG, QD
     Route: 048
  33. PREDNISONE. [Concomitant]
     Active Substance: PREDNISONE
  34. VITAMIN B-1 [Concomitant]
     Dosage: 100 MG, QD
  35. TRAMADOL [Concomitant]
     Active Substance: TRAMADOL
     Dosage: 100 MG, UNK
  36. CONSTULOSE [Concomitant]
     Active Substance: LACTULOSE
     Dosage: 15 ML, PRN

REACTIONS (11)
  - Headache [Not Recovered/Not Resolved]
  - Oedema [Recovering/Resolving]
  - Death [Fatal]
  - Oedema peripheral [Recovered/Resolved]
  - Ocular hyperaemia [Recovered/Resolved]
  - Ammonia increased [Recovered/Resolved]
  - Right ventricular failure [Recovered/Resolved]
  - Abdominal distension [Recovered/Resolved]
  - Dyspnoea [Recovered/Resolved]
  - Dizziness [Not Recovered/Not Resolved]
  - Pain in jaw [Not Recovered/Not Resolved]

NARRATIVE: CASE EVENT DATE: 20141028
